FAERS Safety Report 5067471-1 (Version None)
Quarter: 2006Q3

REPORT INFORMATION
  Report Type: 
  Country: None (occurrence: None)
  Receive Date: 20060802
  Receipt Date: 20060315
  Transmission Date: 20061208
  Serious: Yes (Other)
  Sender: FDA-Public Use
  Company Number: US-BAYER-200611691BWH

PATIENT
  Sex: Male

DRUGS (1)
  1. NEXAVAR [Suspect]
     Indication: RENAL CELL CARCINOMA STAGE UNSPECIFIED
     Route: 048
     Dates: start: 20060101

REACTIONS (5)
  - ABASIA [None]
  - DISEASE PROGRESSION [None]
  - DYSPNOEA [None]
  - EJECTION FRACTION DECREASED [None]
  - VENTRICULAR DYSFUNCTION [None]
